FAERS Safety Report 24818839 (Version 1)
Quarter: 2025Q1

REPORT INFORMATION
  Report Type: Spontaneous
  Country: CN (occurrence: CN)
  Receive Date: 20250108
  Receipt Date: 20250108
  Transmission Date: 20250409
  Serious: Yes (Hospitalization)
  Sender: BAYER HEALTHCARE PHARMACEUTICALS INC.
  Company Number: CN-BAYER-2025A002825

PATIENT
  Age: 72 Year
  Sex: Female

DRUGS (2)
  1. KERENDIA [Suspect]
     Active Substance: FINERENONE
     Indication: Type 2 diabetes mellitus
     Dosage: 1 DF, QD
     Route: 048
     Dates: start: 20240927, end: 20241210
  2. KERENDIA [Suspect]
     Active Substance: FINERENONE
     Indication: Proteinuria

REACTIONS (1)
  - Drug-induced liver injury [Recovering/Resolving]

NARRATIVE: CASE EVENT DATE: 20241210
